FAERS Safety Report 5337984-3 (Version None)
Quarter: 2007Q2

REPORT INFORMATION
  Report Type: 
  Country: None (occurrence: None)
  Receive Date: 20070530
  Receipt Date: 20070525
  Transmission Date: 20071010
  Serious: Yes (Death)
  Sender: FDA-Public Use
  Company Number: US-ELI_LILLY_AND_COMPANY-US200705006658

PATIENT
  Age: 35 Year
  Sex: Male

DRUGS (5)
  1. ZYPREXA [Suspect]
     Indication: BIPOLAR DISORDER
     Dosage: 20 MG, EACH MORNING
     Route: 048
     Dates: start: 20040101
  2. ZYPREXA [Suspect]
     Dosage: 10 MG, DAILY (1/D)
     Route: 048
     Dates: start: 20040101
  3. ZYPREXA [Suspect]
     Dosage: 30 MG, EACH EVENING
     Route: 048
     Dates: start: 20040101
  4. LITHIUM CARBONATE [Concomitant]
     Dosage: 300 MG, DAILY (1/D)
  5. ACTOS [Concomitant]

REACTIONS (2)
  - DEATH [None]
  - PRESCRIBED OVERDOSE [None]
